FAERS Safety Report 10824283 (Version 1)
Quarter: 2015Q1

REPORT INFORMATION
  Report Type: Report from Study
  Country: US (occurrence: US)
  Receive Date: 20150219
  Receipt Date: 20150219
  Transmission Date: 20150721
  Serious: No
  Sender: FDA-Public Use
  Company Number: US-ABBVIE-14K-163-1310804-00

PATIENT
  Age: 49 Year
  Sex: Female
  Weight: 54.48 kg

DRUGS (5)
  1. PREDNISONE. [Concomitant]
     Active Substance: PREDNISONE
     Indication: CROHN^S DISEASE
  2. DEXILANT [Concomitant]
     Active Substance: DEXLANSOPRAZOLE
     Indication: GASTROOESOPHAGEAL REFLUX DISEASE
  3. HUMIRA [Suspect]
     Active Substance: ADALIMUMAB
     Indication: CROHN^S DISEASE
     Route: 058
     Dates: start: 20141115, end: 20141115
  4. ZOLOFT [Concomitant]
     Active Substance: SERTRALINE HYDROCHLORIDE
     Indication: ANXIETY
  5. DEXILANT [Concomitant]
     Active Substance: DEXLANSOPRAZOLE
     Indication: GASTROOESOPHAGEAL REFLUX DISEASE

REACTIONS (7)
  - Injection site pain [Recovered/Resolved]
  - Incorrect dose administered [Unknown]
  - Wrong technique in drug usage process [Unknown]
  - Fatigue [Recovered/Resolved]
  - Anxiety [Recovered/Resolved]
  - Syncope [Recovered/Resolved]
  - Device issue [Unknown]

NARRATIVE: CASE EVENT DATE: 20141115
